FAERS Safety Report 23296486 (Version 1)
Quarter: 2023Q4

REPORT INFORMATION
  Report Type: Spontaneous
  Country: US (occurrence: None)
  Receive Date: 20231214
  Receipt Date: 20231214
  Transmission Date: 20240110
  Serious: Yes (Hospitalization)
  Sender: FDA-Public Use
  Company Number: None

PATIENT
  Age: 14 Month
  Sex: Female

DRUGS (1)
  1. CANNABIDIOL\HERBALS [Suspect]
     Active Substance: CANNABIDIOL\HERBALS

REACTIONS (3)
  - Product administered to patient of inappropriate age [None]
  - Unresponsive to stimuli [None]
  - Wrong patient received product [None]

NARRATIVE: CASE EVENT DATE: 20231213
